FAERS Safety Report 7903197-1 (Version None)
Quarter: 2011Q4

REPORT INFORMATION
  Report Type: 
  Country: None (occurrence: None)
  Receive Date: 20111103
  Receipt Date: 20111027
  Transmission Date: 20120403
  Serious: Yes (Other)
  Sender: FDA-Public Use
  Company Number: 2011SP043242

PATIENT
  Age: 43 Year
  Sex: Female

DRUGS (6)
  1. SAPHRIS [Suspect]
     Indication: BIPOLAR DISORDER
     Dosage: 10 MG;HS;PO
     Route: 048
     Dates: start: 20110101
  2. DEPAKOTE ER [Concomitant]
  3. COGENTIN [Concomitant]
  4. DEPAKOTE ER [Concomitant]
  5. DEPACON [Concomitant]
  6. TOPAMAX [Concomitant]

REACTIONS (1)
  - SOMNAMBULISM [None]
